FAERS Safety Report 8385599-5 (Version None)
Quarter: 2012Q2

REPORT INFORMATION
  Report Type: 
  Country: None (occurrence: None)
  Receive Date: 20120523
  Receipt Date: 20120523
  Transmission Date: 20120825
  Serious: No
  Sender: FDA-Public Use
  Company Number: None

PATIENT

DRUGS (1)
  1. STRATTERA [Suspect]

REACTIONS (3)
  - PRODUCT QUALITY ISSUE [None]
  - DEPRESSION [None]
  - SUICIDAL IDEATION [None]
